FAERS Safety Report 24732140 (Version 3)
Quarter: 2025Q4

REPORT INFORMATION
  Report Type: Report from Study
  Country: JP (occurrence: JP)
  Receive Date: 20241213
  Receipt Date: 20251007
  Transmission Date: 20260117
  Serious: Yes (Death)
  Sender: SHIONOGI
  Company Number: JP-shionogi-202406506_FTR_P_1

PATIENT
  Age: 2 Year
  Sex: Male
  Weight: 6.45 kg

DRUGS (17)
  1. CEFIDEROCOL [Suspect]
     Active Substance: CEFIDEROCOL
     Indication: Bacteraemia
     Route: 041
     Dates: start: 20240823, end: 20240904
  2. CEFIDEROCOL [Suspect]
     Active Substance: CEFIDEROCOL
     Indication: Acinetobacter bacteraemia
     Route: 041
     Dates: start: 20240910, end: 20240925
  3. CEFIDEROCOL [Suspect]
     Active Substance: CEFIDEROCOL
     Route: 041
     Dates: start: 20240930, end: 20241004
  4. MEROPENEM [Concomitant]
     Active Substance: MEROPENEM
     Indication: Bacteraemia
     Route: 065
     Dates: start: 20240813, end: 20240903
  5. MEROPENEM [Concomitant]
     Active Substance: MEROPENEM
     Indication: Acinetobacter bacteraemia
  6. AMIKACIN [Concomitant]
     Active Substance: AMIKACIN
     Indication: Bacteraemia
     Route: 065
     Dates: start: 20240813, end: 20240903
  7. AMIKACIN [Concomitant]
     Active Substance: AMIKACIN
     Indication: Acinetobacter bacteraemia
  8. TEICOPLANIN [Concomitant]
     Active Substance: TEICOPLANIN
     Indication: Bacteraemia
     Route: 065
     Dates: start: 20240814, end: 20240903
  9. TEICOPLANIN [Concomitant]
     Active Substance: TEICOPLANIN
     Indication: Acinetobacter bacteraemia
  10. XYZAL [Concomitant]
     Active Substance: LEVOCETIRIZINE DIHYDROCHLORIDE
     Indication: Product used for unknown indication
     Dosage: SINCE BEFORE THE ADMINISTRATION OF FETROJA
     Route: 051
     Dates: end: 20241003
  11. FERRIC PYROPHOSPHATE [Concomitant]
     Active Substance: FERRIC PYROPHOSPHATE
     Indication: Product used for unknown indication
     Dosage: SINCE BEFORE THE ADMINISTRATION OF FETROJA
     Route: 051
     Dates: end: 20241003
  12. MOSAPRIDE CITRATE [Concomitant]
     Active Substance: MOSAPRIDE CITRATE
     Indication: Prophylaxis
     Dosage: SINCE BEFORE THE ADMINISTRATION OF FETROJA
     Route: 051
     Dates: end: 20241003
  13. RIKKUNSHITO [ATRACTYLODES LANCEA RHIZOME;CITRUS X AURANTIUM PEEL;GLYCY [Concomitant]
     Indication: Prophylaxis
     Dosage: SINCE BEFORE THE ADMINISTRATION OF FETROJA
     Route: 051
     Dates: end: 20241003
  14. GABAPENTIN [Concomitant]
     Active Substance: GABAPENTIN
     Indication: Product used for unknown indication
     Dosage: SINCE BEFORE THE ADMINISTRATION OF FETROJA
     Route: 051
     Dates: end: 20241003
  15. FAMOTIDINE [Concomitant]
     Active Substance: FAMOTIDINE
     Indication: Product used for unknown indication
     Dosage: SINCE BEFORE THE ADMINISTRATION OF FETROJA
     Route: 051
     Dates: end: 20241003
  16. CIPROFLOXACIN HYDROCHLORIDE [Concomitant]
     Active Substance: CIPROFLOXACIN HYDROCHLORIDE
     Indication: Bacteraemia
     Route: 048
     Dates: start: 20240813, end: 20240824
  17. CIPROFLOXACIN HYDROCHLORIDE [Concomitant]
     Active Substance: CIPROFLOXACIN HYDROCHLORIDE
     Indication: Acinetobacter bacteraemia

REACTIONS (8)
  - Septic shock [Fatal]
  - Pseudomonas infection [Fatal]
  - Acinetobacter bacteraemia [Fatal]
  - Malnutrition [Fatal]
  - Bacteraemia [Fatal]
  - Dehydration [Fatal]
  - Epidermolysis bullosa [Fatal]
  - Product administered to patient of inappropriate age [Unknown]

NARRATIVE: CASE EVENT DATE: 20241003
